FAERS Safety Report 15231794 (Version 2)
Quarter: 2018Q3

REPORT INFORMATION
  Report Type: Report from Study
  Country: IL (occurrence: IL)
  Receive Date: 20180802
  Receipt Date: 20180817
  Transmission Date: 20181010
  Serious: Yes (Hospitalization, Other)
  Sender: FDA-Public Use
  Company Number: IL-IPSEN BIOPHARMACEUTICALS, INC.-2018-09199

PATIENT
  Age: 55 Year
  Sex: Male
  Weight: 76 kg

DRUGS (8)
  1. IRON [Suspect]
     Active Substance: IRON
     Indication: PRODUCT USED FOR UNKNOWN INDICATION
     Route: 048
  2. LYRICA [Concomitant]
     Active Substance: PREGABALIN
  3. IFN?ALFA [Concomitant]
     Indication: NEUROENDOCRINE TUMOUR
  4. SOMATULINE AUTOGEL 120MG [Suspect]
     Active Substance: LANREOTIDE ACETATE
     Indication: NEUROENDOCRINE TUMOUR
     Dosage: 120 MG
     Route: 065
     Dates: start: 20110816
  5. AFINITOR [Suspect]
     Active Substance: EVEROLIMUS
     Indication: NEUROENDOCRINE TUMOUR
     Dates: start: 201806, end: 2018
  6. FENTANYL. [Suspect]
     Active Substance: FENTANYL
     Indication: PRODUCT USED FOR UNKNOWN INDICATION
  7. RECLAST [Suspect]
     Active Substance: ZOLEDRONIC ACID
     Indication: NEUROENDOCRINE TUMOUR
  8. SOMATULINE AUTOGEL 120MG [Suspect]
     Active Substance: LANREOTIDE ACETATE
     Dosage: 240 MG
     Route: 065
     Dates: start: 2018

REACTIONS (15)
  - Peripheral swelling [Unknown]
  - Overdose [Unknown]
  - Gallbladder operation [Unknown]
  - Metastases to spine [Recovered/Resolved]
  - Neoplasm progression [Unknown]
  - Ureteric obstruction [Unknown]
  - Thrombophlebitis superficial [Unknown]
  - Haemoglobin decreased [Unknown]
  - Constipation [Unknown]
  - Abdominal pain [Unknown]
  - Lung hyperinflation [Unknown]
  - Renal failure [Unknown]
  - Urinary retention [Unknown]
  - Dermatitis contact [Unknown]
  - Tumour compression [Recovered/Resolved]

NARRATIVE: CASE EVENT DATE: 201711
